FAERS Safety Report 11819042 (Version 1)
Quarter: 2015Q4

REPORT INFORMATION
  Report Type: Spontaneous
  Country: US (occurrence: US)
  Receive Date: 20151210
  Receipt Date: 20151210
  Transmission Date: 20160305
  Serious: No
  Sender: FDA-Public Use
  Company Number: US-JNJFOC-20150703047

PATIENT
  Sex: Male

DRUGS (4)
  1. RISPERDAL [Suspect]
     Active Substance: RISPERIDONE
     Indication: AFFECTIVE DISORDER
     Dosage: VARYING DOSES OF 0.25 MG, 0.5 MG, 1 MG, AND 2 MG
     Route: 048
     Dates: start: 2006, end: 2014
  2. RISPERDAL [Suspect]
     Active Substance: RISPERIDONE
     Indication: AFFECTIVE DISORDER
     Dosage: VARYING DOSES OF 0.25 MG, 0.5 MG, 1 MG, 1.5 MG AND 2 MG
     Route: 048
     Dates: start: 2014, end: 2015
  3. RISPERDAL [Suspect]
     Active Substance: RISPERIDONE
     Indication: PERSONALITY CHANGE
     Dosage: VARYING DOSES OF 0.25 MG, 0.5 MG, 1 MG, 1.5 MG AND 2 MG
     Route: 048
     Dates: start: 2014, end: 2015
  4. RISPERDAL [Suspect]
     Active Substance: RISPERIDONE
     Indication: PERSONALITY CHANGE
     Dosage: VARYING DOSES OF 0.25 MG, 0.5 MG, 1 MG, AND 2 MG
     Route: 048
     Dates: start: 2006, end: 2014

REACTIONS (4)
  - Gynaecomastia [Unknown]
  - Abnormal weight gain [Unknown]
  - Off label use [Unknown]
  - Product use issue [Unknown]

NARRATIVE: CASE EVENT DATE: 2006
